FAERS Safety Report 17115147 (Version 1)
Quarter: 2019Q4

REPORT INFORMATION
  Report Type: Spontaneous
  Country: US (occurrence: US)
  Receive Date: 20191204
  Receipt Date: 20191204
  Transmission Date: 20200122
  Serious: Yes (Disabling, Other)
  Sender: FDA-Public Use
  Company Number: None

PATIENT
  Age: 64 Month
  Sex: Female

DRUGS (1)
  1. JEUVEAU [Suspect]
     Active Substance: PRABOTULINUMTOXINA-XVFS
     Indication: SKIN COSMETIC PROCEDURE
     Dates: start: 20190801

REACTIONS (2)
  - Vision blurred [None]
  - Dry eye [None]

NARRATIVE: CASE EVENT DATE: 20190801
